FAERS Safety Report 21957173 (Version 2)
Quarter: 2023Q1

REPORT INFORMATION
  Report Type: Spontaneous
  Country: US (occurrence: US)
  Receive Date: 20230206
  Receipt Date: 20230331
  Transmission Date: 20230417
  Serious: No
  Sender: FDA-Public Use
  Company Number: US-BRISTOL-MYERS SQUIBB COMPANY-2023-016203

PATIENT
  Age: 31 Year
  Sex: Male

DRUGS (2)
  1. ZEPOSIA [Suspect]
     Active Substance: OZANIMOD HYDROCHLORIDE
     Indication: Colitis ulcerative
     Dosage: DOSE/FREQUENCY: TAKE 0.23 MG BY MOUTH 1 TIME A DAY FOR 4 DAYS THEN TAKE 0.46 MG BY MOUTH 1TIME A DAY
     Route: 048
     Dates: start: 202301
  2. ZEPOSIA [Suspect]
     Active Substance: OZANIMOD HYDROCHLORIDE
     Route: 048
     Dates: start: 202301

REACTIONS (2)
  - Drug ineffective [Unknown]
  - Fatigue [Unknown]
